FAERS Safety Report 23221288 (Version 2)
Quarter: 2023Q4

REPORT INFORMATION
  Report Type: Spontaneous
  Country: CZ (occurrence: CZ)
  Receive Date: 20231123
  Receipt Date: 20231205
  Transmission Date: 20240109
  Serious: Yes (Life-Threatening, Hospitalization, Disabling, Other)
  Sender: FDA-Public Use
  Company Number: None

PATIENT
  Age: 55 Year
  Sex: Male
  Weight: 95 kg

DRUGS (3)
  1. THYMOGLOBULINE [Suspect]
     Active Substance: LAPINE T-LYMPHOCYTE IMMUNE GLOBULIN
     Indication: Allogenic bone marrow transplantation therapy
     Dosage: 300 MG + 500ML OF SALINE SOLUTION, I.V., FOR 12 HOURS, 2 DOSESMMF, FK506 AS PER PROTOCOL, CHECKING L
     Route: 042
     Dates: start: 20230319, end: 20230320
  2. MYCOPHENOLATE MOFETIL [Concomitant]
     Active Substance: MYCOPHENOLATE MOFETIL
     Indication: Prophylaxis against graft versus host disease
  3. TACROLIMUS [Concomitant]
     Active Substance: TACROLIMUS
     Indication: Prophylaxis against graft versus host disease

REACTIONS (8)
  - Acute graft versus host disease in intestine [Recovering/Resolving]
  - Diarrhoea [Recovering/Resolving]
  - Colitis [Recovering/Resolving]
  - Acute graft versus host disease in skin [Recovering/Resolving]
  - Rash [Recovering/Resolving]
  - Drug ineffective [Unknown]
  - Generalised oedema [Recovering/Resolving]
  - Hypoalbuminaemia [Recovering/Resolving]

NARRATIVE: CASE EVENT DATE: 20230929
